FAERS Safety Report 13225700 (Version 10)
Quarter: 2017Q3

REPORT INFORMATION
  Report Type: Report from Study
  Country: CA (occurrence: CA)
  Receive Date: 20170213
  Receipt Date: 20170823
  Transmission Date: 20171127
  Serious: Yes (Hospitalization, Other)
  Sender: FDA-Public Use
  Company Number: CA-GLAXOSMITHKLINE-CA2017GSK019217

PATIENT
  Age: 89 Year
  Sex: Male

DRUGS (4)
  1. MEPOLIZUMAB [Suspect]
     Active Substance: MEPOLIZUMAB
     Indication: ASTHMA
     Dosage: 100 MG, Z, 100MG MONTHLY
     Dates: start: 20170309
  2. VENTOLIN [Suspect]
     Active Substance: ALBUTEROL SULFATE
     Indication: PRODUCT USED FOR UNKNOWN INDICATION
     Dosage: UNK, USED APPX. 5 YEARS
  3. MEPOLIZUMAB [Suspect]
     Active Substance: MEPOLIZUMAB
     Dosage: UNK, 100MG MONTHLY
  4. PREDNISONE. [Suspect]
     Active Substance: PREDNISONE
     Indication: PRODUCT USED FOR UNKNOWN INDICATION
     Dosage: UNK

REACTIONS (16)
  - Dyspnoea [Unknown]
  - Weight fluctuation [Unknown]
  - Prostatic disorder [Unknown]
  - Nasal congestion [Unknown]
  - Extrasystoles [Unknown]
  - Pneumonia [Recovered/Resolved]
  - Lung disorder [Unknown]
  - Productive cough [Recovering/Resolving]
  - Chest discomfort [Not Recovered/Not Resolved]
  - Drug ineffective [Unknown]
  - Pulmonary congestion [Unknown]
  - Micturition disorder [Unknown]
  - Spinal fracture [Unknown]
  - Asthma [Recovered/Resolved]
  - Hospitalisation [Unknown]
  - Spinal disorder [Unknown]

NARRATIVE: CASE EVENT DATE: 201512
